FAERS Safety Report 4691426-X (Version None)
Quarter: 2005Q2

REPORT INFORMATION
  Report Type: 
  Country: None (occurrence: None)
  Receive Date: 20050615
  Receipt Date: 20050527
  Transmission Date: 20051028
  Serious: Yes (Other)
  Sender: FDA-Public Use
  Company Number: 26752

PATIENT
  Age: 52 Year
  Sex: Female

DRUGS (3)
  1. ALDARA [Suspect]
     Indication: BASAL CELL CARCINOMA
     Dosage: SEE IMAGE
     Route: 061
     Dates: start: 20050406, end: 20050505
  2. ALDARA [Suspect]
     Indication: BASAL CELL CARCINOMA
     Dosage: SEE IMAGE
     Route: 061
     Dates: start: 20050506
  3. MULTI-VITAMINS [Concomitant]

REACTIONS (8)
  - APPLICATION SITE ERYTHEMA [None]
  - APPLICATION SITE OEDEMA [None]
  - APPLICATION SITE PAIN [None]
  - APPLICATION SITE REACTION [None]
  - DEHYDRATION [None]
  - DYSGEUSIA [None]
  - DYSPEPSIA [None]
  - HEADACHE [None]
